FAERS Safety Report 6138786-0 (Version None)
Quarter: 2009Q1

REPORT INFORMATION
  Report Type: 
  Country: None (occurrence: None)
  Receive Date: 20090331
  Receipt Date: 20090330
  Transmission Date: 20090719
  Serious: Yes (Death, Other)
  Sender: FDA-Public Use
  Company Number: PHEH2009US02471

PATIENT
  Sex: Male

DRUGS (1)
  1. EXELON [Suspect]
     Dosage: 4.6 MG, QD
     Route: 062
     Dates: start: 20090301

REACTIONS (6)
  - CONFUSIONAL STATE [None]
  - DEATH [None]
  - HALLUCINATION, VISUAL [None]
  - PARKINSON'S DISEASE [None]
  - PSYCHOTIC DISORDER [None]
  - TREMOR [None]
